FAERS Safety Report 23925927 (Version 1)
Quarter: 2024Q2

REPORT INFORMATION
  Report Type: Spontaneous
  Country: US (occurrence: None)
  Receive Date: 20240530
  Receipt Date: 20240530
  Transmission Date: 20240716
  Serious: Yes (Hospitalization)
  Sender: FDA-Public Use
  Company Number: None

PATIENT
  Age: 64 Year
  Sex: Female
  Weight: 48.6 kg

DRUGS (2)
  1. TYMLOS [Suspect]
     Active Substance: ABALOPARATIDE
     Indication: Osteoporosis
     Dosage: OTHER STRENGTH : 80 MCG;?OTHER QUANTITY : 1 INJECTION(S);?FREQUENCY : DAILY;?
     Route: 058
     Dates: start: 20240523, end: 20240523
  2. statin [Concomitant]

REACTIONS (7)
  - Nausea [None]
  - Therapy cessation [None]
  - Vomiting [None]
  - Renal disorder [None]
  - Blood calcium increased [None]
  - Blood pressure measurement [None]
  - Nervous system disorder [None]

NARRATIVE: CASE EVENT DATE: 20240525
